FAERS Safety Report 9415073 (Version 3)
Quarter: 2013Q4

REPORT INFORMATION
  Report Type: Spontaneous
  Country: GB (occurrence: GB)
  Receive Date: 20130723
  Receipt Date: 20131018
  Transmission Date: 20140711
  Serious: Yes (Other)
  Sender: FDA-Public Use
  Company Number: GB-JNJFOC-20130712674

PATIENT
  Sex: Female

DRUGS (1)
  1. STELARA [Suspect]
     Indication: PSORIASIS
     Route: 058

REACTIONS (10)
  - Lower respiratory tract infection [Recovered/Resolved]
  - Rash [Recovered/Resolved]
  - Alopecia [Recovering/Resolving]
  - Dermatitis [Recovered/Resolved]
  - Fungal skin infection [Recovering/Resolving]
  - Eye infection [Recovered/Resolved]
  - White blood cell count decreased [Recovering/Resolving]
  - Erythema [Recovering/Resolving]
  - Upper respiratory tract infection [Recovering/Resolving]
  - Arthritis [Recovering/Resolving]
